FAERS Safety Report 24200495 (Version 1)
Quarter: 2024Q3

REPORT INFORMATION
  Report Type: Spontaneous
  Country: US (occurrence: None)
  Receive Date: 20240810
  Receipt Date: 20240810
  Transmission Date: 20241017
  Serious: Yes (Death)
  Sender: Public
  Company Number: None

PATIENT
  Age: 32 Year
  Sex: Male
  Weight: 63 kg

DRUGS (1)
  1. HERBALS\MITRAGYNINE [Suspect]
     Active Substance: HERBALS\MITRAGYNINE

REACTIONS (4)
  - Substance use [None]
  - Hypophagia [None]
  - Insomnia [None]
  - Impaired work ability [None]

NARRATIVE: CASE EVENT DATE: 20240707
